FAERS Safety Report 17865918 (Version 3)
Quarter: 2020Q3

REPORT INFORMATION
  Report Type: Spontaneous
  Country: US (occurrence: US)
  Receive Date: 20200605
  Receipt Date: 20200714
  Transmission Date: 20201103
  Serious: Yes (Hospitalization)
  Sender: FDA-Public Use
  Company Number: US-PFIZER INC-2020220374

PATIENT
  Age: 49 Year
  Sex: Female

DRUGS (1)
  1. IBRANCE [Suspect]
     Active Substance: PALBOCICLIB
     Dosage: 125 MG, CYCLIC (X21, 7 DAYS OFF)
     Route: 048
     Dates: start: 20200514

REACTIONS (3)
  - Gastrointestinal haemorrhage [Unknown]
  - Migraine [Unknown]
  - Vomiting [Unknown]
